FAERS Safety Report 4744705-1 (Version None)
Quarter: 2005Q3

REPORT INFORMATION
  Report Type: 
  Country: None (occurrence: None)
  Receive Date: 20050812
  Receipt Date: 20050812
  Transmission Date: 20060218
  Serious: Yes (Hospitalization, Other)
  Sender: FDA-Public Use
  Company Number: None

PATIENT
  Sex: Female
  Weight: 60.9 kg

DRUGS (6)
  1. DOXORUBICIN HCL [Suspect]
     Indication: ENDOMETRIAL CANCER
     Dosage: SEE IMAGE
     Route: 042
     Dates: start: 20050706, end: 20050706
  2. CISPLATIN [Suspect]
     Dosage: SEE IMAGE
     Dates: start: 20050706, end: 20050706
  3. PACLITAXEL [Suspect]
     Dosage: SEE IMAGE
     Dates: start: 20050707, end: 20050707
  4. PACLITAXEL [Suspect]
     Dosage: SEE IMAGE
     Dates: start: 20050706
  5. G-CSF [Suspect]
     Dosage: SEE IMAGE
     Dates: start: 20050808, end: 20050808
  6. G-CSF [Suspect]
     Dosage: SEE IMAGE
     Dates: start: 20050706

REACTIONS (1)
  - PULMONARY EMBOLISM [None]
